FAERS Safety Report 8565682-1 (Version None)
Quarter: 2012Q3

REPORT INFORMATION
  Report Type: 
  Country: None (occurrence: None)
  Receive Date: 20120803
  Receipt Date: 20111214
  Transmission Date: 20120928
  Serious: No
  Sender: FDA-Public Use
  Company Number: US-ABBOTT-11P-163-0883293-00

PATIENT
  Sex: Female
  Weight: 118.49 kg

DRUGS (8)
  1. PRAVASTATIN [Concomitant]
     Indication: PRODUCT USED FOR UNKNOWN INDICATION
  2. JANUMET [Concomitant]
     Indication: PRODUCT USED FOR UNKNOWN INDICATION
  3. NAPRELAN [Concomitant]
     Indication: PRODUCT USED FOR UNKNOWN INDICATION
  4. MEGA FISH OIL [Concomitant]
     Indication: PRODUCT USED FOR UNKNOWN INDICATION
  5. NIASPAN [Suspect]
     Indication: PRODUCT USED FOR UNKNOWN INDICATION
     Dosage: AT BEDTIME
     Dates: start: 20111101
  6. DIOVAN [Concomitant]
     Indication: PRODUCT USED FOR UNKNOWN INDICATION
  7. EXCEDRIN (MIGRAINE) [Concomitant]
     Indication: PRODUCT USED FOR UNKNOWN INDICATION
  8. MVT [Concomitant]
     Indication: PRODUCT USED FOR UNKNOWN INDICATION

REACTIONS (4)
  - FLUSHING [None]
  - FEELING HOT [None]
  - SKIN BURNING SENSATION [None]
  - PRURITUS [None]
